FAERS Safety Report 8138024-3 (Version None)
Quarter: 2012Q1

REPORT INFORMATION
  Report Type: 
  Country: None (occurrence: None)
  Receive Date: 20120215
  Receipt Date: 20120213
  Transmission Date: 20120608
  Serious: Yes (Other)
  Sender: FDA-Public Use
  Company Number: US-PFIZER INC-2012038826

PATIENT
  Sex: Male
  Weight: 120.18 kg

DRUGS (10)
  1. TAMSULOSIN [Concomitant]
     Indication: BLOOD CHOLESTEROL INCREASED
     Dosage: UNK
  2. ZOLPIDEM [Concomitant]
     Dosage: UNK
  3. INSULIN GLARGINE [Concomitant]
     Indication: DIABETES MELLITUS
     Dosage: UNK
  4. PREDNISONE [Concomitant]
     Dosage: UNK
  5. ALLOPURINOL [Concomitant]
     Dosage: 100 MG, UNK
  6. AMITRIPTYLINE [Concomitant]
     Dosage: UNK
  7. VIAGRA [Suspect]
     Indication: ERECTILE DYSFUNCTION
     Dosage: 100 MG, AS NEEDED
     Route: 048
     Dates: start: 20100101
  8. WARFARIN [Concomitant]
     Indication: THROMBOSIS
     Dosage: 5 MG, 1X/DAY
  9. FLUOXETINE [Concomitant]
     Dosage: UNK
  10. GLIPIZIDE [Concomitant]
     Indication: DIABETES MELLITUS
     Dosage: UNK

REACTIONS (1)
  - MEMORY IMPAIRMENT [None]
